FAERS Safety Report 8311713-3 (Version None)
Quarter: 2012Q2

REPORT INFORMATION
  Report Type: 
  Country: None (occurrence: None)
  Receive Date: 20120425
  Receipt Date: 20120423
  Transmission Date: 20120825
  Serious: No
  Sender: FDA-Public Use
  Company Number: US-PFIZER INC-2012100351

PATIENT
  Sex: Female
  Weight: 58.957 kg

DRUGS (2)
  1. ADVIL LIQUI-GELS [Suspect]
     Dosage: UNK
     Dates: start: 20120417, end: 20120420
  2. ADVIL PM [Suspect]
     Indication: INSOMNIA
     Dosage: UNK, 1X/DAY
     Route: 048
     Dates: start: 20110901, end: 20120417

REACTIONS (2)
  - DRUG INEFFECTIVE [None]
  - WRONG DRUG ADMINISTERED [None]
